FAERS Safety Report 5679926-7 (Version None)
Quarter: 2008Q1

REPORT INFORMATION
  Report Type: 
  Country: None (occurrence: None)
  Receive Date: 20080324
  Receipt Date: 20080306
  Transmission Date: 20080703
  Serious: Yes (Life-Threatening)
  Sender: FDA-Public Use
  Company Number: 2008JP001009

PATIENT
  Age: 64 Year
  Sex: Female
  Weight: 44.1 kg

DRUGS (7)
  1. PROGRAF [Suspect]
     Indication: RHEUMATOID ARTHRITIS
     Dosage: 1 MG, UID/QD, ORAL : 2 MG, UID/QD, ORAL : 3 MG, UID/QD, ORAL
     Route: 048
     Dates: start: 20070719, end: 20070815
  2. PROGRAF [Suspect]
     Indication: RHEUMATOID ARTHRITIS
     Dosage: 1 MG, UID/QD, ORAL : 2 MG, UID/QD, ORAL : 3 MG, UID/QD, ORAL
     Route: 048
     Dates: start: 20070816, end: 20070911
  3. PROGRAF [Suspect]
     Indication: RHEUMATOID ARTHRITIS
     Dosage: 1 MG, UID/QD, ORAL : 2 MG, UID/QD, ORAL : 3 MG, UID/QD, ORAL
     Route: 048
     Dates: start: 20070912, end: 20080205
  4. METHOTREXATE   (METHOTREXATE SODIUM) TABLET [Suspect]
     Indication: RHEUMATOID ARTHRITIS
     Dosage: 4 MG, WEEKLY, ORAL
     Route: 048
     Dates: start: 19880510, end: 20080205
  5. MEDROL [Concomitant]
  6. NORVASC [Concomitant]
  7. BONALON    (ALENDRONIC ACID) TABLET [Concomitant]

REACTIONS (1)
  - LYMPHOMA [None]
